FAERS Safety Report 8344885-5 (Version None)
Quarter: 2012Q2

REPORT INFORMATION
  Report Type: 
  Country: None (occurrence: None)
  Receive Date: 20120508
  Receipt Date: 20100416
  Transmission Date: 20120825
  Serious: Yes (Other)
  Sender: FDA-Public Use
  Company Number: US-TEVA-2010002265

PATIENT
  Sex: Female

DRUGS (1)
  1. FENTORA [Suspect]
     Indication: BACK PAIN
     Route: 002

REACTIONS (2)
  - RESPIRATORY ARREST [None]
  - SOMNOLENCE [None]
